FAERS Safety Report 5648670-4 (Version None)
Quarter: 2008Q1

REPORT INFORMATION
  Report Type: 
  Country: None (occurrence: None)
  Receive Date: 20080304
  Receipt Date: 20080225
  Transmission Date: 20080703
  Serious: Yes (Death, Hospitalization)
  Sender: FDA-Public Use
  Company Number: A0713323A

PATIENT
  Sex: Male

DRUGS (1)
  1. AVANDIA [Suspect]
     Route: 048
     Dates: start: 20050101, end: 20060425

REACTIONS (9)
  - ANXIETY [None]
  - DEATH [None]
  - DEPRESSION [None]
  - DISABILITY [None]
  - EMOTIONAL DISTRESS [None]
  - INJURY [None]
  - MYOCARDIAL INFARCTION [None]
  - PAIN [None]
  - SCAR [None]
